FAERS Safety Report 18411539 (Version 4)
Quarter: 2020Q4

REPORT INFORMATION
  Report Type: Spontaneous
  Country: US (occurrence: US)
  Receive Date: 20201021
  Receipt Date: 20201118
  Transmission Date: 20210114
  Serious: Yes (Life-Threatening, Hospitalization)
  Sender: FDA-Public Use
  Company Number: US-JNJFOC-20201022541

PATIENT
  Age: 62 Year
  Sex: Female

DRUGS (2)
  1. PARACETAMOL [Suspect]
     Active Substance: ACETAMINOPHEN
     Indication: PRODUCT USED FOR UNKNOWN INDICATION
     Dosage: TIME OF EXPOSURE: 1.00 DAYS AGO
     Route: 048
  2. IBUPROFEN. [Suspect]
     Active Substance: IBUPROFEN
     Indication: PRODUCT USED FOR UNKNOWN INDICATION
     Dosage: TIME OF EXPOSURE: 1.00 DAYS AGO
     Route: 048

REACTIONS (12)
  - International normalised ratio increased [Not Recovered/Not Resolved]
  - Alanine aminotransferase increased [Recovering/Resolving]
  - Acute respiratory distress syndrome [Unknown]
  - Acidosis [Unknown]
  - Blood creatinine increased [Recovering/Resolving]
  - Confusional state [Unknown]
  - Overdose [Unknown]
  - Blood pressure increased [Unknown]
  - Suspected suicide [Unknown]
  - Tachycardia [Unknown]
  - Aspartate aminotransferase increased [Recovering/Resolving]
  - Prothrombin time prolonged [Unknown]

NARRATIVE: CASE EVENT DATE: 202010
